FAERS Safety Report 7898007-5 (Version None)
Quarter: 2011Q4

REPORT INFORMATION
  Report Type: 
  Country: None (occurrence: None)
  Receive Date: 20111107
  Receipt Date: 20111107
  Transmission Date: 20120403
  Serious: Yes (Other)
  Sender: FDA-Public Use
  Company Number: None

PATIENT
  Sex: Female
  Weight: 72.574 kg

DRUGS (1)
  1. LUPRON DEPOT [Suspect]

REACTIONS (8)
  - MIGRAINE [None]
  - URINARY TRACT INFECTION [None]
  - FATIGUE [None]
  - HOT FLUSH [None]
  - MOOD SWINGS [None]
  - INSOMNIA [None]
  - PAIN [None]
  - VAGINAL INFECTION [None]
